FAERS Safety Report 8333003-5 (Version None)
Quarter: 2012Q2

REPORT INFORMATION
  Report Type: 
  Country: None (occurrence: None)
  Receive Date: 20120503
  Receipt Date: 20120424
  Transmission Date: 20120825
  Serious: Yes (Hospitalization)
  Sender: FDA-Public Use
  Company Number: US-BRISTOL-MYERS SQUIBB COMPANY-16548059

PATIENT
  Age: 39 Year
  Sex: Male

DRUGS (2)
  1. ARIXTRA [Suspect]
     Dosage: INJECTION
     Route: 058
     Dates: start: 20120210
  2. COUMADIN [Suspect]

REACTIONS (1)
  - CEREBROVASCULAR ACCIDENT [None]
